FAERS Safety Report 5572130-2 (Version None)
Quarter: 2007Q4

REPORT INFORMATION
  Report Type: 
  Country: None (occurrence: None)
  Receive Date: 20071221
  Receipt Date: 20071213
  Transmission Date: 20080405
  Serious: Yes (Other)
  Sender: FDA-Public Use
  Company Number: JP-PFIZER INC-2007100454

PATIENT
  Age: 74 Year
  Sex: Female

DRUGS (3)
  1. NORVASC [Suspect]
     Indication: HYPERTENSION
     Dosage: DAILY DOSE:10MG
     Route: 048
  2. LIPITOR [Suspect]
     Indication: HYPERCHOLESTEROLAEMIA
     Dosage: DAILY DOSE:10MG
     Route: 048
  3. ARICEPT [Suspect]
     Indication: DEMENTIA
     Dosage: DAILY DOSE:5MG
     Route: 048

REACTIONS (2)
  - DEMENTIA [None]
  - MUSCLE SPASMS [None]
